FAERS Safety Report 8972171 (Version 1)
Quarter: 2012Q4

REPORT INFORMATION
  Report Type: 
  Country: FI (occurrence: FI)
  Receive Date: 20121219
  Receipt Date: 20121219
  Transmission Date: 20130627
  Serious: Yes (Other)
  Sender: FDA-Public Use
  Company Number: FI-PFIZER INC-2012318029

PATIENT
  Age: 44 Year
  Sex: Male

DRUGS (1)
  1. SUTENT [Suspect]
     Indication: MULTIPLE ENDOCRINE NEOPLASIA TYPE I
     Dosage: 25 mg, 1x/day, 4 weeks on/2 weeks off
     Route: 048

REACTIONS (1)
  - Angina pectoris [Recovering/Resolving]
